FAERS Safety Report 9201947 (Version 2)
Quarter: 2013Q4

REPORT INFORMATION
  Report Type: Spontaneous
  Country: US (occurrence: US)
  Receive Date: 20130401
  Receipt Date: 20131125
  Transmission Date: 20140711
  Serious: Yes (Hospitalization, Other)
  Sender: FDA-Public Use
  Company Number: US-BAYER-2013-038382

PATIENT
  Age: 39 Year
  Sex: Female

DRUGS (11)
  1. YAZ [Suspect]
  2. YASMIN [Suspect]
  3. OCELLA [Suspect]
  4. HYDROCODONE/ACETAMINOPHEN [Concomitant]
     Dosage: 5-500 MG
  5. IOPHEN-C [Concomitant]
     Dosage: 100-10 MG/5
  6. CEFUROXIME [Concomitant]
     Dosage: 250 MG, UNK
  7. MAXALT [Concomitant]
     Indication: MIGRAINE
     Dosage: 10 MG, PRN
     Dates: start: 20070314
  8. PREDNISONE [Concomitant]
     Dosage: 20 MG, 6 DAYS
  9. VICODIN [Concomitant]
     Dosage: UNK
     Dates: start: 20070314
  10. PERCOCET [Concomitant]
  11. IBUPROFEN [Concomitant]

REACTIONS (5)
  - Gallbladder injury [None]
  - Cholecystitis chronic [None]
  - Pain [None]
  - Injury [None]
  - Pain [None]
